FAERS Safety Report 10142119 (Version 1)
Quarter: 2014Q2

REPORT INFORMATION
  Report Type: Report from Study
  Country: DE (occurrence: DE)
  Receive Date: 20140429
  Receipt Date: 20140429
  Transmission Date: 20141212
  Serious: No
  Sender: FDA-Public Use
  Company Number: PHHY2014DE051871

PATIENT
  Sex: Male

DRUGS (11)
  1. AMN107 [Suspect]
     Indication: CHRONIC MYELOID LEUKAEMIA
     Dosage: 600 MG, PER DAY
     Route: 048
     Dates: start: 20120308, end: 20130803
  2. AMN107 [Suspect]
     Dosage: 300 MG, PER DAY
     Route: 048
     Dates: start: 20130804
  3. ALLOPURINOL [Concomitant]
     Dosage: 300 MG, UNK
     Dates: start: 20120227
  4. SIMVASTATIN [Concomitant]
     Dosage: 20 MG, UNK
  5. FURORESE [Concomitant]
     Dosage: 40 MG, UNK
     Dates: start: 20120302
  6. ASS [Concomitant]
     Dosage: 100 MG, UNK
  7. BISOPROLOL [Concomitant]
     Dosage: 2.5 MG, UNK
  8. OMEPRAZOLE [Concomitant]
     Dosage: 20 MG, UNK
  9. TIZANIDINE [Concomitant]
  10. OXICODONA [Concomitant]
  11. NOVAMINSULFON [Concomitant]
     Dosage: 20 DRP, TID

REACTIONS (1)
  - Lymphocyte count increased [Not Recovered/Not Resolved]
